APPROVED DRUG PRODUCT: DESMOPRESSIN ACETATE
Active Ingredient: DESMOPRESSIN ACETATE
Strength: 0.01MG/SPRAY
Dosage Form/Route: SPRAY, METERED;NASAL
Application: A074830 | Product #001 | TE Code: AB
Applicant: BAUSCH HEALTH US LLC
Approved: Jan 25, 1999 | RLD: No | RS: Yes | Type: RX